FAERS Safety Report 9757587 (Version 3)
Quarter: 2013Q4

REPORT INFORMATION
  Report Type: Spontaneous
  Country: US (occurrence: US)
  Receive Date: 20131216
  Receipt Date: 20131220
  Transmission Date: 20140711
  Serious: Yes (Hospitalization)
  Sender: FDA-Public Use
  Company Number: US-BIOGENIDEC-2013BI098320

PATIENT
  Age: 62 Year
  Sex: Male

DRUGS (6)
  1. AVONEX [Suspect]
     Indication: MULTIPLE SCLEROSIS
     Route: 030
  2. AVONEX [Suspect]
     Indication: MULTIPLE SCLEROSIS
     Route: 030
     Dates: start: 2003
  3. AVONEX [Suspect]
     Indication: MULTIPLE SCLEROSIS
     Route: 030
     Dates: start: 20030629
  4. AVONEX [Suspect]
     Indication: MULTIPLE SCLEROSIS
     Route: 030
     Dates: start: 201108
  5. PERCOCET [Concomitant]
     Indication: INJURY
  6. LOVENOX [Concomitant]
     Indication: ROAD TRAFFIC ACCIDENT

REACTIONS (10)
  - Road traffic accident [Recovered/Resolved]
  - Facial bones fracture [Recovered/Resolved]
  - Jaw fracture [Recovered/Resolved]
  - Femur fracture [Not Recovered/Not Resolved]
  - Contusion [Recovered/Resolved]
  - Concussion [Recovered/Resolved]
  - Wrist fracture [Recovered/Resolved]
  - Multiple fractures [Not Recovered/Not Resolved]
  - Sudden onset of sleep [Recovered/Resolved]
  - Weight bearing difficulty [Unknown]
